FAERS Safety Report 7772221-1 (Version None)
Quarter: 2011Q3

REPORT INFORMATION
  Report Type: 
  Country: None (occurrence: None)
  Receive Date: 20110922
  Receipt Date: 20110413
  Transmission Date: 20111222
  Serious: No
  Sender: FDA-Public Use
  Company Number: US-ASTRAZENECA-2009UW17746

PATIENT
  Age: 9875 Day
  Sex: Male
  Weight: 137 kg

DRUGS (8)
  1. CELEXA [Concomitant]
     Route: 048
     Dates: start: 20001219
  2. SEROQUEL [Suspect]
     Indication: MANIA
     Route: 048
     Dates: start: 20000101, end: 20060101
  3. EFFEXOR [Concomitant]
     Dosage: 75 MG PO Q AM AND 225 MG Q HS
     Route: 048
     Dates: start: 20001219
  4. LIPITOR [Concomitant]
     Dosage: 10 QHS
     Dates: start: 20020118
  5. NEURONTIN [Concomitant]
     Dates: start: 20020118
  6. SEROQUEL [Suspect]
     Indication: BIPOLAR DISORDER
     Route: 048
     Dates: start: 20000101, end: 20060101
  7. SEROQUEL [Suspect]
     Dosage: 50 MG PO Q AM AND 300 MG Q HS
     Route: 048
     Dates: start: 20001219
  8. SEROQUEL [Suspect]
     Dosage: 50 MG PO Q AM AND 300 MG Q HS
     Route: 048
     Dates: start: 20001219

REACTIONS (6)
  - TYPE 2 DIABETES MELLITUS [None]
  - HYPERLIPIDAEMIA [None]
  - OBESITY [None]
  - INSULIN RESISTANCE SYNDROME [None]
  - BLOOD CHOLESTEROL INCREASED [None]
  - HYPERINSULINAEMIA [None]
